FAERS Safety Report 9907976 (Version 1)
Quarter: 2014Q1

REPORT INFORMATION
  Report Type: Spontaneous
  Country: AU (occurrence: AU)
  Receive Date: 20140219
  Receipt Date: 20140219
  Transmission Date: 20141002
  Serious: Yes (Other)
  Sender: FDA-Public Use
  Company Number: AU-SUN PHARMACEUTICAL INDUSTRIES LTD-2014SUN00316

PATIENT
  Age: 55 Year
  Sex: Male

DRUGS (1)
  1. GEMCITABINE [Suspect]
     Indication: ADENOCARCINOMA PANCREAS
     Dosage: 1000 MG/M2, ON DAYS 1, 8, AND 15 IN A 28-DAY CYCLE
     Route: 065
     Dates: start: 20110712

REACTIONS (1)
  - Thrombotic microangiopathy [Recovering/Resolving]
